FAERS Safety Report 7684235-0 (Version None)
Quarter: 2011Q3

REPORT INFORMATION
  Report Type: 
  Country: None (occurrence: None)
  Receive Date: 20110815
  Receipt Date: 20110805
  Transmission Date: 20111222
  Serious: Yes (Hospitalization, Other)
  Sender: FDA-Public Use
  Company Number: US-RB-031200-11

PATIENT
  Age: 56 Year
  Sex: Female

DRUGS (2)
  1. SUBOXONE [Suspect]
     Indication: DRUG DEPENDENCE
     Route: 060
     Dates: start: 20090101, end: 20110401
  2. SUBOXONE [Suspect]
     Route: 060
     Dates: start: 20110401

REACTIONS (2)
  - SKIN FISSURES [None]
  - DRUG WITHDRAWAL SYNDROME [None]
